FAERS Safety Report 7167931-3 (Version None)
Quarter: 2010Q4

REPORT INFORMATION
  Report Type: 
  Country: None (occurrence: None)
  Receive Date: 20101216
  Receipt Date: 20101203
  Transmission Date: 20110411
  Serious: No
  Sender: FDA-Public Use
  Company Number: US-PFIZER INC-2010164979

PATIENT
  Age: 19 Year
  Sex: Female
  Weight: 49.887 kg

DRUGS (1)
  1. ALAVERT [Suspect]
     Indication: URTICARIA
     Dosage: 1 TABLET AS NEEDED
     Route: 048
     Dates: start: 20070101, end: 20070101

REACTIONS (1)
  - DRUG INEFFECTIVE [None]
